FAERS Safety Report 13269486 (Version 6)
Quarter: 2017Q3

REPORT INFORMATION
  Report Type: Report from Study
  Country: None (occurrence: AT)
  Receive Date: 20170224
  Receipt Date: 20170821
  Transmission Date: 20171127
  Serious: Yes (Hospitalization)
  Sender: FDA-Public Use
  Company Number: AT-ABBVIE-16P-009-1761857-00

PATIENT
  Age: 68 Year
  Sex: Male

DRUGS (57)
  1. CYCLOPHOSPHAMIDE. [Suspect]
     Active Substance: CYCLOPHOSPHAMIDE
     Dosage: MOST RECENT DOSE PRIOR TO SECOND EPISODE OF SYNCOPE AND FN (1500 MG) WAS07NOV16
     Route: 042
  2. DOXORUBICIN [Suspect]
     Active Substance: DOXORUBICIN
     Dosage: MOST RECENT DOSE PRIOR TO COMMON COLD, THIRD EPISODE FN (50MG) 28NOV16
     Route: 042
  3. ZOFRAN [Concomitant]
     Active Substance: ONDANSETRON HYDROCHLORIDE
     Indication: PROPHYLAXIS OF NAUSEA AND VOMITING
     Route: 048
     Dates: start: 20160903
  4. LOVENOX [Concomitant]
     Active Substance: ENOXAPARIN SODIUM
     Dates: start: 20160923, end: 20160924
  5. PASPERTIN [Concomitant]
     Active Substance: METOCLOPRAMIDE HYDROCHLORIDE
     Indication: NAUSEA
     Dates: start: 201610
  6. RITUXIMAB. [Suspect]
     Active Substance: RITUXIMAB
     Dosage: MOST RECENT DOSE PRIOR TO INFLUENZA INFECTION (740MG) WAS 20DEC16
     Route: 042
  7. SIMVASTATIN. [Concomitant]
     Active Substance: SIMVASTATIN
     Indication: HYPERLIPIDAEMIA
  8. OLEOVIT D3 [Concomitant]
     Active Substance: CHOLECALCIFEROL
     Indication: VITAMIN SUPPLEMENTATION
     Dates: start: 20160902
  9. TAVANIC [Concomitant]
     Active Substance: LEVOFLOXACIN
     Indication: INFECTION PROPHYLAXIS
     Dates: start: 20160906, end: 20170102
  10. BURONIL [Concomitant]
     Active Substance: MELPERONE HYDROCHLORIDE
     Indication: PRODUCT USED FOR UNKNOWN INDICATION
     Dates: start: 20161014, end: 20161014
  11. VENETOCLAX. [Suspect]
     Active Substance: VENETOCLAX
     Indication: B-CELL LYMPHOMA
     Dosage: MOST RECENT DOSE PRIOR TO FIRST EPISODE OF SYNCOPE WAS 20OCT16
     Route: 048
     Dates: start: 20160905
  12. VENETOCLAX. [Suspect]
     Active Substance: VENETOCLAX
     Dosage: MOST RECENT DOSE PRIOR TO COMMON COLD, THIRD FN (400MG) WAS 7DEC16
     Route: 048
  13. RITUXIMAB. [Suspect]
     Active Substance: RITUXIMAB
     Indication: B-CELL LYMPHOMA
     Dosage: MOST RECENT DOSE PRIOR TO FIRST EPISODE OF SYNCOPE AND FN, INFECTION (740MG) WAS 14OCT16
     Route: 042
     Dates: start: 20160902
  14. CYCLOPHOSPHAMIDE. [Suspect]
     Active Substance: CYCLOPHOSPHAMIDE
     Dosage: MOST RECENT DOSE PRIOR TO COMMON COLD, THIRD EPISODE OF FN (1500 MG) WAS 28NOV16
     Route: 042
  15. CYCLOPHOSPHAMIDE. [Suspect]
     Active Substance: CYCLOPHOSPHAMIDE
     Dosage: MOST RECENT DOSE PRIOR TO INFLUENZA INFECTION (1500 MG) WAS 20DEC16
     Route: 042
  16. DOXORUBICIN [Suspect]
     Active Substance: DOXORUBICIN
     Indication: B-CELL LYMPHOMA
     Dosage: MOST RECENT DOSE PRIOR TO FIRST EPISODE OF SYNCOPE, FN, INFECTION(100MG) WAS 14OCT16
     Route: 042
     Dates: start: 20160902
  17. PREDNISONE. [Suspect]
     Active Substance: PREDNISONE
     Dosage: MOST RECENT DOSE PRIOR TO SECOND EPISODE OF SYNCOPE AND FN WAS 11NOV16
     Route: 048
  18. THROMBO ASS (ASPRIN) [Concomitant]
     Indication: PROPHYLAXIS
  19. LYRICA [Concomitant]
     Active Substance: PREGABALIN
     Indication: ANXIETY DISORDER
     Dates: start: 20161020
  20. ALLOPURINOL. [Concomitant]
     Active Substance: ALLOPURINOL
     Indication: PROPHYLAXIS
     Dates: start: 20160902
  21. TEMESTA [Concomitant]
     Active Substance: LORAZEPAM
     Indication: PRODUCT USED FOR UNKNOWN INDICATION
     Dates: start: 20161026, end: 20161027
  22. PREDNISONE. [Suspect]
     Active Substance: PREDNISONE
     Indication: B-CELL LYMPHOMA
     Dosage: 100MG DAILY ON DAYS 1-5 OF EACH CYCLE
     Route: 048
     Dates: start: 20160902
  23. PREDNISONE. [Suspect]
     Active Substance: PREDNISONE
     Dosage: MOST RECENT DOSE PRIOR TO COMMON COLD AND THIRD FN WAS 02DEC16
     Route: 048
  24. METOHEXAL [Concomitant]
     Active Substance: METOPROLOL SUCCINATE
     Indication: CARDIAC FAILURE
  25. RATIOGRASTIM [Concomitant]
     Active Substance: FILGRASTIM
     Dates: start: 20160927, end: 20161005
  26. PASSEDAN [Concomitant]
     Indication: ANXIETY
     Dates: start: 20161023, end: 20161024
  27. VENETOCLAX. [Suspect]
     Active Substance: VENETOCLAX
     Dosage: MOST RECENT DOSE PRIOR TO SECOND FEBRILE NEUTROPENIA AND INFECTION WAS 23OCT16
     Route: 048
  28. RITUXIMAB. [Suspect]
     Active Substance: RITUXIMAB
     Dosage: MOST RECENT DOSE PRIOR TO COMMON COLD, THIRD EPISODE OF FN (740MG) WAS 28NOV16
     Route: 042
  29. PANTOLOC [Concomitant]
     Active Substance: PANTOPRAZOLE SODIUM
     Indication: PROPHYLAXIS
  30. ELO-MEL [Concomitant]
     Active Substance: CALCIUM CHLORIDE\MAGNESIUM CHLORIDE\POTASSIUM CHLORIDE\SODIUM ACETATE\SODIUM CHLORIDE
     Indication: PRODUCT USED FOR UNKNOWN INDICATION
     Dates: start: 20160902, end: 20160906
  31. LOVENOX [Concomitant]
     Active Substance: ENOXAPARIN SODIUM
     Dates: start: 20161014, end: 20161014
  32. CYCLOPHOSPHAMIDE. [Suspect]
     Active Substance: CYCLOPHOSPHAMIDE
     Indication: B-CELL LYMPHOMA
     Dosage: MOST RECENT DOSE PRIOR TO FIRST EPISODE OF SYNCOPE AND FN, INFECTION (1500 MG) WAS 14OCT16
     Route: 042
     Dates: start: 20160902
  33. DOXORUBICIN [Suspect]
     Active Substance: DOXORUBICIN
     Dosage: MOST RECENT DOSE PRIOR TO SECOND EPISODE OF SYNCOPE, FN (100MG) WAS 07NOV16
     Route: 042
  34. PREDNISONE. [Suspect]
     Active Substance: PREDNISONE
     Dosage: MOST RECENT DOSE 24 DEC 16
     Route: 048
  35. AMLODIPIN [Concomitant]
     Active Substance: AMLODIPINE BESYLATE
     Indication: HYPERTENSION
  36. CITALOPRAM [Concomitant]
     Active Substance: CITALOPRAM HYDROBROMIDE
     Indication: DEPRESSION
  37. ACEMIN [Concomitant]
     Active Substance: LISINOPRIL
     Indication: HYPERTENSION
     Dates: start: 201610
  38. NEUDOLPASSE [Concomitant]
     Indication: PAIN
     Dates: start: 20160902, end: 20160902
  39. VENETOCLAX. [Suspect]
     Active Substance: VENETOCLAX
     Dosage: MOST RECENT DOSE PRIOR TO SECOND EPISODE OF SYNCOPE WAS 16NOV16
     Route: 048
  40. RITUXIMAB. [Suspect]
     Active Substance: RITUXIMAB
     Dosage: MOST RECENT DOSE PRIOR TO SECOND EPISODE OF SYNCOPE, FN (740MG) WAS 07NOV16
     Route: 042
  41. VINCRISTINE [Suspect]
     Active Substance: VINCRISTINE
     Dosage: MOST RECENT DOSE PRIOR TO COMMON COLD AND THIRD EPISODE FN (1MG) WAS 28NOV16
     Route: 042
  42. PREDNISONE. [Suspect]
     Active Substance: PREDNISONE
     Dosage: MOST RECENT DOSE PRIOR TO FIRST EPISODE OF SYNCOPE, FN, INFECTION WAS 18OCT16
     Route: 048
  43. RATIOGRASTIM [Concomitant]
     Active Substance: FILGRASTIM
     Dates: start: 20161018, end: 20161020
  44. RATIOGRASTIM [Concomitant]
     Active Substance: FILGRASTIM
     Dates: start: 20161116, end: 20161121
  45. NEUROMULTIVIT [Concomitant]
     Active Substance: CYANOCOBALAMIN\PYRIDOXINE\THIAMINE
     Indication: POLYNEUROPATHY
     Dates: start: 201611
  46. CLAVAMOX [Concomitant]
     Active Substance: AMOXICILLIN\CLAVULANATE POTASSIUM
     Indication: PRODUCT USED FOR UNKNOWN INDICATION
     Dates: start: 20161103, end: 20161110
  47. DOXORUBICIN [Suspect]
     Active Substance: DOXORUBICIN
     Dosage: MOST RECENT DOSE PRIOR TO INFLUENZA INFECTION (100MG) 20DEC16
     Route: 042
  48. VINCRISTINE [Suspect]
     Active Substance: VINCRISTINE
     Indication: B-CELL LYMPHOMA
     Dosage: MOST RECENT DOSE PRIOR TO FIRST EPISODE OF SYNCOPE, FN, INFECTION (2MG) WAS 14OCT16
     Route: 042
     Dates: start: 20160902
  49. VINCRISTINE [Suspect]
     Active Substance: VINCRISTINE
     Dosage: MOST RECENT DOSE PRIOR TO SECOND EPISODE OF SYNCOPE, FN (1MG) WAS 07NOV16
     Route: 042
  50. VINCRISTINE [Suspect]
     Active Substance: VINCRISTINE
     Dosage: MOST RECENT DOSE PRIOR TO  INFLUENZA INFECTION (1MG) WAS 20DEC16
     Route: 042
  51. KCL ZYMA [Concomitant]
     Indication: PRODUCT USED FOR UNKNOWN INDICATION
     Dates: start: 201609
  52. OPTIFIBRE(DIETARY FIBER) [Concomitant]
     Indication: CONSTIPATION
     Dates: start: 201609
  53. RATIOGRASTIM [Concomitant]
     Active Substance: FILGRASTIM
     Indication: PRODUCT USED FOR UNKNOWN INDICATION
     Dates: start: 20160906, end: 20160910
  54. EMEND [Concomitant]
     Active Substance: APREPITANT
     Indication: PROPHYLAXIS OF NAUSEA AND VOMITING
     Dates: start: 20161014
  55. LOVENOX [Concomitant]
     Active Substance: ENOXAPARIN SODIUM
     Indication: THROMBOSIS PROPHYLAXIS
     Dates: start: 20160902, end: 20160905
  56. MAGNESIUM SULFATE. [Concomitant]
     Active Substance: MAGNESIUM SULFATE
     Indication: PRODUCT USED FOR UNKNOWN INDICATION
     Dates: start: 20161027, end: 20161027
  57. CALCIUM GLYCEROPHOSPHATE\CELLULOSE\POLYETHYLENE GLYCOL\SACCHARIN SODIUM\SODIUM HYDROXIDE\SODIUM LAURYL SULFATE\SODIUM MAGNESIUM SILICATE\SODIUM MONOFLUOROPHOSPHATE\SORBITOL\WATER [Concomitant]
     Active Substance: CALCIUM GLYCEROPHOSPHATE\POLYETHYLENE GLYCOLS\POWDERED CELLULOSE\SACCHARIN SODIUM DIHYDRATE\SODIUM HYDROXIDE\SODIUM LAURYL SULFATE\SODIUM MAGNESIUM SILICATE\SODIUM MONOFLUOROPHOSPHATE\SORBITOL\WATER
     Indication: CONSTIPATION

REACTIONS (5)
  - Infection [Recovered/Resolved]
  - Syncope [Recovered/Resolved]
  - Influenza [Recovered/Resolved]
  - Febrile neutropenia [Recovered/Resolved]
  - Nasopharyngitis [Not Recovered/Not Resolved]

NARRATIVE: CASE EVENT DATE: 20161020
